FAERS Safety Report 9484815 (Version 1)
Quarter: 2013Q3

REPORT INFORMATION
  Report Type: Spontaneous
  Country: US (occurrence: US)
  Receive Date: 20130828
  Receipt Date: 20130828
  Transmission Date: 20140515
  Serious: Yes (Hospitalization)
  Sender: FDA-Public Use
  Company Number: US-AMGEN-USASP2010004792

PATIENT
  Age: 54 Year
  Sex: Female

DRUGS (1)
  1. ENBREL [Suspect]
     Indication: PSORIASIS
     Route: 065
     Dates: start: 20070402

REACTIONS (6)
  - Colitis [Recovered/Resolved]
  - Intestinal anastomosis [Recovered/Resolved]
  - Ileostomy [Recovered/Resolved]
  - Anastomotic stenosis [Unknown]
  - Localised infection [Unknown]
  - Urinary tract infection [Unknown]
